FAERS Safety Report 6824583-7 (Version None)
Quarter: 2010Q3

REPORT INFORMATION
  Report Type: 
  Country: None (occurrence: None)
  Receive Date: 20100708
  Receipt Date: 20061122
  Transmission Date: 20110219
  Serious: Yes (Other)
  Sender: FDA-Public Use
  Company Number: US-PFIZER INC-2006136375

PATIENT
  Sex: Female
  Weight: 50.8 kg

DRUGS (3)
  1. CHANTIX [Suspect]
     Indication: SMOKING CESSATION THERAPY
     Dates: start: 20060919
  2. HYDROCODONE BITARTRATE [Concomitant]
  3. XANAX [Concomitant]

REACTIONS (5)
  - DECREASED APPETITE [None]
  - HEADACHE [None]
  - HYPERTENSION [None]
  - NAUSEA [None]
  - VOMITING [None]
